FAERS Safety Report 18182441 (Version 1)
Quarter: 2020Q3

REPORT INFORMATION
  Report Type: Report from Study
  Country: SG (occurrence: SG)
  Receive Date: 20200821
  Receipt Date: 20200821
  Transmission Date: 20201103
  Serious: Yes (Other)
  Sender: FDA-Public Use
  Company Number: SG-MYLANLABS-2020M1072836

PATIENT
  Age: 56 Year
  Sex: Female

DRUGS (2)
  1. PACLITAXEL. [Suspect]
     Active Substance: PACLITAXEL
     Indication: METASTATIC UTERINE CANCER
     Dosage: 175 MILLIGRAM/SQ. METER ADMINISTERED OVER 3H
     Route: 042
  2. CARBOPLATIN. [Concomitant]
     Active Substance: CARBOPLATIN
     Indication: METASTATIC UTERINE CANCER
     Route: 065

REACTIONS (2)
  - Cystoid macular oedema [Recovered/Resolved]
  - Blindness [Recovering/Resolving]
